FAERS Safety Report 8583599-3 (Version None)
Quarter: 2012Q3

REPORT INFORMATION
  Report Type: 
  Country: None (occurrence: None)
  Receive Date: 20120809
  Receipt Date: 20120727
  Transmission Date: 20120928
  Serious: Yes (Death)
  Sender: FDA-Public Use
  Company Number: GB-MYLANLABS-2012S1010794

PATIENT
  Age: 40 Year
  Sex: Male
  Weight: 104 kg

DRUGS (9)
  1. METHADONE HYDROCHLORIDE [Suspect]
     Indication: PAIN
     Route: 048
     Dates: start: 20111025, end: 20111030
  2. VENTOLIN [Concomitant]
     Indication: PRODUCT USED FOR UNKNOWN INDICATION
  3. MULTI-VITAMIN [Concomitant]
     Indication: PRODUCT USED FOR UNKNOWN INDICATION
  4. ORAMORPH SR [Concomitant]
     Indication: PAIN
     Route: 048
     Dates: start: 20110707, end: 20111025
  5. DIAZEPAM [Concomitant]
     Indication: ANXIETY
     Route: 048
     Dates: start: 20111019
  6. LANSOPRAZOLE [Concomitant]
     Indication: GASTRITIS
     Route: 048
     Dates: start: 20111019
  7. CLARITHROMYCIN [Suspect]
     Indication: LOWER RESPIRATORY TRACT INFECTION
     Route: 048
     Dates: start: 20111028
  8. ADCAL D3 [Concomitant]
     Indication: CROHN'S DISEASE
     Route: 048
     Dates: start: 20110808
  9. HUMIRA [Concomitant]
     Indication: CROHN'S DISEASE
     Route: 030
     Dates: start: 20111005, end: 20111019

REACTIONS (20)
  - INHIBITORY DRUG INTERACTION [None]
  - BLOOD URINE [None]
  - MALAISE [None]
  - DYSURIA [None]
  - DIZZINESS [None]
  - DIPLOPIA [None]
  - UPPER RESPIRATORY TRACT INFECTION [None]
  - SOMNOLENCE [None]
  - TOXICITY TO VARIOUS AGENTS [None]
  - HYPERHIDROSIS [None]
  - HEART RATE INCREASED [None]
  - HICCUPS [None]
  - HEADACHE [None]
  - TREMOR [None]
  - VISION BLURRED [None]
  - CHEST PAIN [None]
  - CROHN'S DISEASE [None]
  - DIFFUSE ALVEOLAR DAMAGE [None]
  - DYSARTHRIA [None]
  - VOMITING [None]
